FAERS Safety Report 11930234 (Version 1)
Quarter: 2016Q1

REPORT INFORMATION
  Report Type: Spontaneous
  Country: US (occurrence: None)
  Receive Date: 20160120
  Receipt Date: 20160120
  Transmission Date: 20160526
  Serious: Yes (Hospitalization)
  Sender: FDA-Public Use
  Company Number: None

PATIENT
  Age: 74 Year
  Sex: Male
  Weight: 86.7 kg

DRUGS (1)
  1. AMIODARONE [Suspect]
     Active Substance: AMIODARONE
     Indication: ATRIAL FIBRILLATION
     Route: 048
     Dates: start: 20151207, end: 20151223

REACTIONS (4)
  - Hepatic enzyme increased [None]
  - Blood creatinine increased [None]
  - International normalised ratio abnormal [None]
  - Blood urea increased [None]

NARRATIVE: CASE EVENT DATE: 20151230
